FAERS Safety Report 11920406 (Version 1)
Quarter: 2016Q1

REPORT INFORMATION
  Report Type: Spontaneous
  Country: US (occurrence: US)
  Receive Date: 20160115
  Receipt Date: 20160115
  Transmission Date: 20160526
  Serious: No
  Sender: FDA-Public Use
  Company Number: US-SHIRE-US201600260

PATIENT
  Sex: Male
  Weight: 134 kg

DRUGS (3)
  1. INTUNIV [Suspect]
     Active Substance: GUANFACINE HYDROCHLORIDE
     Indication: TIC
     Dosage: 4 MG, 1X/DAY:QD (AT NIGHT)
     Route: 048
     Dates: end: 2015
  2. INTUNIV [Suspect]
     Active Substance: GUANFACINE HYDROCHLORIDE
     Dosage: 6 MG, 1X/DAY:QD (AT NIGHT)
     Route: 048
     Dates: start: 2015
  3. INTUNIV [Suspect]
     Active Substance: GUANFACINE HYDROCHLORIDE
     Dosage: 2 MG, 1X/DAY:QD (DURING THE DAY)
     Route: 048
     Dates: start: 2015

REACTIONS (3)
  - Inappropriate schedule of drug administration [Not Recovered/Not Resolved]
  - Product use issue [Not Recovered/Not Resolved]
  - Tic [Not Recovered/Not Resolved]

NARRATIVE: CASE EVENT DATE: 2007
